FAERS Safety Report 11695726 (Version 1)
Quarter: 2015Q4

REPORT INFORMATION
  Report Type: Spontaneous
  Country: US (occurrence: None)
  Receive Date: 20151103
  Receipt Date: 20151103
  Transmission Date: 20160304
  Serious: No
  Sender: FDA-Public Use
  Company Number: None

PATIENT
  Age: 61 Year
  Sex: Female
  Weight: 80.74 kg

DRUGS (6)
  1. VITAMIN D [Concomitant]
     Active Substance: CHOLECALCIFEROL
  2. CELEBREX GENERIC CELECOXIB CAP 100 MG [Suspect]
     Active Substance: CELECOXIB
     Indication: ARTHRITIS
     Route: 048
     Dates: start: 20150915, end: 20151030
  3. KLOR-CON [Concomitant]
     Active Substance: POTASSIUM CHLORIDE
  4. HYDROCHLOROTHIAZIDE. [Concomitant]
     Active Substance: HYDROCHLOROTHIAZIDE
  5. CELEBREX GENERIC CELECOXIB CAP 100 MG [Suspect]
     Active Substance: CELECOXIB
     Indication: BACK PAIN
     Route: 048
     Dates: start: 20150915, end: 20151030
  6. CRESTOR [Concomitant]
     Active Substance: ROSUVASTATIN CALCIUM

REACTIONS (9)
  - Dyspepsia [None]
  - Feeding disorder [None]
  - Weight increased [None]
  - Gastrooesophageal reflux disease [None]
  - Back pain [None]
  - Product substitution issue [None]
  - Oropharyngeal pain [None]
  - Ear discomfort [None]
  - Arthralgia [None]

NARRATIVE: CASE EVENT DATE: 20150915
